FAERS Safety Report 7597326-X (Version None)
Quarter: 2011Q3

REPORT INFORMATION
  Report Type: 
  Country: None (occurrence: None)
  Receive Date: 20110708
  Receipt Date: 20110706
  Transmission Date: 20111222
  Serious: Yes (Other)
  Sender: FDA-Public Use
  Company Number: US-PFIZER INC-2011152638

PATIENT
  Sex: Female
  Weight: 81.633 kg

DRUGS (1)
  1. LYRICA [Suspect]
     Indication: NEUROPATHY PERIPHERAL
     Dosage: 50 MG, 2X/DAY
     Route: 048
     Dates: start: 20110630, end: 20110701

REACTIONS (6)
  - MOBILITY DECREASED [None]
  - TREMOR [None]
  - DISORIENTATION [None]
  - SPEECH DISORDER [None]
  - AGITATION [None]
  - PAIN [None]
